FAERS Safety Report 9661217 (Version 1)
Quarter: 2013Q4

REPORT INFORMATION
  Report Type: Spontaneous
  Country: US (occurrence: US)
  Receive Date: 20131031
  Receipt Date: 20131031
  Transmission Date: 20140711
  Serious: No
  Sender: FDA-Public Use
  Company Number: US-TEVA-441269USA

PATIENT
  Age: 33 Year
  Sex: Female
  Weight: 73.55 kg

DRUGS (4)
  1. PARAGARD 380A [Suspect]
     Indication: CONTRACEPTION
     Route: 015
  2. COZAAR [Concomitant]
     Indication: HYPERTENSION
  3. ATENOLOL [Concomitant]
     Indication: HYPERTENSION
  4. OMEGA ACID [Concomitant]

REACTIONS (1)
  - Device expulsion [Not Recovered/Not Resolved]
